FAERS Safety Report 21660340 (Version 2)
Quarter: 2022Q4

REPORT INFORMATION
  Report Type: Spontaneous
  Country: JP (occurrence: JP)
  Receive Date: 20221130
  Receipt Date: 20221215
  Transmission Date: 20230113
  Serious: Yes (Hospitalization)
  Sender: FDA-Public Use
  Company Number: JP-JNJFOC-20221156344

PATIENT
  Age: 23 Year
  Sex: Male

DRUGS (3)
  1. SIMPONI [Suspect]
     Active Substance: GOLIMUMAB
     Indication: Behcet^s syndrome
     Dosage: DOSE UNKNOWN
     Route: 058
  2. SIMPONI [Suspect]
     Active Substance: GOLIMUMAB
     Dosage: DOSE UNKNOWN
     Route: 058
  3. TACROLIMUS [Concomitant]
     Active Substance: TACROLIMUS
     Dosage: DOSE UNKNOWN
     Route: 048

REACTIONS (2)
  - Epstein-Barr virus infection [Recovering/Resolving]
  - Off label use [Unknown]
